FAERS Safety Report 18700846 (Version 1)
Quarter: 2021Q1

REPORT INFORMATION
  Report Type: Spontaneous
  Country: US (occurrence: US)
  Receive Date: 20210105
  Receipt Date: 20210105
  Transmission Date: 20210419
  Serious: Yes (Hospitalization)
  Sender: FDA-Public Use
  Company Number: US-SA-2021SA001954

PATIENT

DRUGS (20)
  1. PREDNISONE. [Concomitant]
     Active Substance: PREDNISONE
  2. DUPIXENT [Suspect]
     Active Substance: DUPILUMAB
     Indication: ASTHMA
     Dosage: 300 MG, QOW
     Route: 058
  3. SOY ISOFLAVONES [SOYA ISOFLAVONES] [Concomitant]
  4. FISH OIL [Concomitant]
     Active Substance: FISH OIL
  5. VITAMIN D3 [Concomitant]
     Active Substance: CHOLECALCIFEROL
  6. GARLIC (DEODORIZED) [Concomitant]
  7. MULTIVITAMINS [VITAMINS NOS] [Concomitant]
     Active Substance: VITAMINS
  8. MONTELUKAST SODIUM. [Concomitant]
     Active Substance: MONTELUKAST SODIUM
  9. GABAPENTIN. [Concomitant]
     Active Substance: GABAPENTIN
  10. BIOTIN [Concomitant]
     Active Substance: BIOTIN
  11. TYLENOL [Concomitant]
     Active Substance: ACETAMINOPHEN
  12. TRAMADOL HCL [Concomitant]
     Active Substance: TRAMADOL HYDROCHLORIDE
  13. ALBUTEROL SULFATE HFA [Concomitant]
     Active Substance: ALBUTEROL SULFATE
  14. IPRATROPIUM BROMIDE/ALBUTEROL SULFATE [Concomitant]
     Active Substance: ALBUTEROL SULFATE\IPRATROPIUM BROMIDE
  15. PERFOROMIST [Concomitant]
     Active Substance: FORMOTEROL FUMARATE DIHYDRATE
     Dosage: 20MCG/2ML VIAL
  16. DUPIXENT [Suspect]
     Active Substance: DUPILUMAB
     Indication: ILLNESS
  17. SPIRIVA RESPIMAT [Concomitant]
     Active Substance: TIOTROPIUM BROMIDE
  18. BUDESONIDE. [Concomitant]
     Active Substance: BUDESONIDE
     Dosage: 0.25 MG/2ML AMPUL?NEB
  19. GLUCOSAMINE HCL [Concomitant]
     Active Substance: GLUCOSAMINE
  20. CRANBERRY [VACCINIUM SPP.] [Concomitant]
     Active Substance: CRANBERRY

REACTIONS (1)
  - COVID-19 [Unknown]

NARRATIVE: CASE EVENT DATE: 2020
